FAERS Safety Report 4421933-6 (Version None)
Quarter: 2004Q3

REPORT INFORMATION
  Report Type: 
  Country: None (occurrence: None)
  Receive Date: 20040804
  Receipt Date: 20040722
  Transmission Date: 20050211
  Serious: Yes (Other)
  Sender: FDA-Public Use
  Company Number: 2004049972

PATIENT
  Age: 85 Year
  Sex: Female
  Weight: 46.7205 kg

DRUGS (9)
  1. LIPITOR [Suspect]
     Indication: BLOOD CHOLESTEROL INCREASED
     Dosage: 10 MG (10 MG, 1 IN 1 D), ORAL
     Route: 048
     Dates: start: 20030101
  2. ZINC [Concomitant]
  3. MYRTILLUS [Concomitant]
  4. VITAMINS NOS [Concomitant]
  5. TOCOPHEROL CONCENTRATE CAP [Concomitant]
  6. CLOPIDOGREL BISULFATE [Concomitant]
  7. DILTIAZEM HYDROCHLORIDE [Concomitant]
  8. DIGOXIN [Concomitant]
  9. WARFARIN SODIUM [Concomitant]

REACTIONS (4)
  - BLOOD CHOLESTEROL INCREASED [None]
  - BURSITIS [None]
  - FALL [None]
  - JOINT INJURY [None]
